FAERS Safety Report 8144927-6 (Version None)
Quarter: 2012Q1

REPORT INFORMATION
  Report Type: 
  Country: None (occurrence: None)
  Receive Date: 20120214
  Receipt Date: 20120207
  Transmission Date: 20120608
  Serious: Yes (Hospitalization)
  Sender: FDA-Public Use
  Company Number: 129723

PATIENT
  Age: 73 Year
  Sex: Female

DRUGS (2)
  1. DIPYRIDAMOLE [Suspect]
  2. REFER TO CIOMS FORM 2011-BP-25505BP (07FEB2012) FOR DETAILS [Concomitant]

REACTIONS (1)
  - PULMONARY OEDEMA [None]
